FAERS Safety Report 5055345-1 (Version None)
Quarter: 2006Q3

REPORT INFORMATION
  Report Type: 
  Country: None (occurrence: None)
  Receive Date: 20060714
  Receipt Date: 20060626
  Transmission Date: 20061208
  Serious: Yes (Other)
  Sender: FDA-Public Use
  Company Number: 2006RR-02853

PATIENT
  Age: 55 Year
  Sex: Male

DRUGS (6)
  1. SIMVASTATIN FAMILY (SIMVASTATIN) TABLET, 10MG [Suspect]
     Indication: HYPERCHOLESTEROLAEMIA
     Dosage: 10 MG, QD; ORAL
     Route: 048
  2. METOPROLOL TARTRATE [Suspect]
     Indication: HYPERTENSION
     Dosage: 100 MG, BID; ORAL, 50 MG, BID
     Route: 048
  3. NIFEDIPINE FAMILY (NIFEDIPINE) TABLET 60 MG [Concomitant]
  4. ASPIRIN [Concomitant]
  5. PRAVASTATIN FAMILY (PRAVASTATIN) TABLET, 20 MG [Concomitant]
  6. ATENOLOL [Concomitant]

REACTIONS (3)
  - NIGHTMARE [None]
  - RESTLESSNESS [None]
  - SLEEP DISORDER [None]
